FAERS Safety Report 8514649-8 (Version None)
Quarter: 2012Q3

REPORT INFORMATION
  Report Type: 
  Country: None (occurrence: None)
  Receive Date: 20120717
  Receipt Date: 20120712
  Transmission Date: 20120928
  Serious: No
  Sender: FDA-Public Use
  Company Number: US-B.I. PHARMACEUTICALS,INC./RIDGEFIELD-2012-BP-15565BP

PATIENT
  Age: 83 Year
  Sex: Female

DRUGS (8)
  1. EFFEXOR XR [Concomitant]
     Indication: DEPRESSION
  2. TRAZODONE HYDROCHLORIDE [Concomitant]
     Indication: DEPRESSION
  3. PRADAXA [Suspect]
     Dosage: 150 MG
     Route: 048
     Dates: start: 20120601
  4. EVISTA [Concomitant]
     Indication: OSTEOPOROSIS
  5. HYDROCHLOROQUINE [Concomitant]
     Indication: ARTHRITIS
  6. PRADAXA [Suspect]
     Indication: ATRIAL FIBRILLATION
     Dosage: 300 MG
     Route: 048
     Dates: start: 20111001, end: 20120601
  7. ALBUTEROL [Concomitant]
  8. LEVOTHROID [Concomitant]
     Indication: HYPOTHYROIDISM

REACTIONS (3)
  - FATIGUE [None]
  - GAIT DISTURBANCE [None]
  - MUSCULAR WEAKNESS [None]
